FAERS Safety Report 8922520 (Version 1)
Quarter: 2012Q4

REPORT INFORMATION
  Report Type: Report from Study
  Country: CA (occurrence: CA)
  Receive Date: 20121123
  Receipt Date: 20121123
  Transmission Date: 20130627
  Serious: Yes (Other)
  Sender: FDA-Public Use
  Company Number: CA-ROCHE-1095863

PATIENT
  Age: 50 Year
  Sex: Female

DRUGS (2)
  1. VEMURAFENIB [Suspect]
     Indication: METASTATIC MALIGNANT MELANOMA
     Route: 048
     Dates: start: 20120727, end: 201211
  2. TYLENOL [Concomitant]
     Indication: PRODUCT USED FOR UNKNOWN INDICATION

REACTIONS (6)
  - Lip swelling [Not Recovered/Not Resolved]
  - Pain [Not Recovered/Not Resolved]
  - Erythema [Not Recovered/Not Resolved]
  - Erythema [Not Recovered/Not Resolved]
  - Hypersensitivity [Not Recovered/Not Resolved]
  - Drug intolerance [Not Recovered/Not Resolved]
